FAERS Safety Report 4274260-4 (Version None)
Quarter: 2004Q1

REPORT INFORMATION
  Report Type: 
  Country: None (occurrence: None)
  Receive Date: 20040115
  Receipt Date: 20040107
  Transmission Date: 20041129
  Serious: Yes (Life-Threatening, Hospitalization)
  Sender: FDA-Public Use
  Company Number: 2003162214JP

PATIENT
  Age: 65 Year
  Sex: Female

DRUGS (2)
  1. CAMPTOSAR [Suspect]
     Indication: LUNG ADENOCARCINOMA
     Dosage: 80 MG, CYCLIC, DAYS 1 + 8, IV DRIP
     Route: 041
     Dates: start: 20030326, end: 20030402
  2. CISPLATIN [Suspect]
     Indication: LUNG ADENOCARCINOMA
     Dosage: 100 MG, IV DRIP
     Route: 041
     Dates: start: 20030326, end: 20030326

REACTIONS (9)
  - ANOREXIA [None]
  - BONE MARROW DEPRESSION [None]
  - CHEST PAIN [None]
  - DIARRHOEA [None]
  - DISSEMINATED INTRAVASCULAR COAGULATION [None]
  - INTESTINAL ULCER PERFORATION [None]
  - PLEURAL EFFUSION [None]
  - PULMONARY MASS [None]
  - PYREXIA [None]
